FAERS Safety Report 21695630 (Version 1)
Quarter: 2022Q4

REPORT INFORMATION
  Report Type: Spontaneous
  Country: US (occurrence: US)
  Receive Date: 20221207
  Receipt Date: 20221207
  Transmission Date: 20230113
  Serious: No
  Sender: FDA-Public Use
  Company Number: US-MYLANLABS-2022M1135263

PATIENT
  Age: 60 Year
  Sex: Female
  Weight: 45.35 kg

DRUGS (3)
  1. XANAX [Suspect]
     Active Substance: ALPRAZOLAM
     Indication: Product used for unknown indication
     Dosage: UNK
     Route: 065
  2. MODERNA COVID-19 VACCINE [Suspect]
     Active Substance: ELASOMERAN
     Indication: COVID-19 immunisation
     Dosage: UNK
     Route: 030
  3. DEPAKOTE [Suspect]
     Active Substance: DIVALPROEX SODIUM
     Indication: Electrolyte imbalance
     Dosage: 500 MILLIGRAM, QD
     Route: 048

REACTIONS (5)
  - Feeling abnormal [Not Recovered/Not Resolved]
  - Pain in extremity [Recovered/Resolved]
  - Pain [Recovered/Resolved]
  - Influenza [Recovered/Resolved]
  - Mobility decreased [Recovered/Resolved]

NARRATIVE: CASE EVENT DATE: 20210301
